FAERS Safety Report 8179253-2 (Version None)
Quarter: 2012Q1

REPORT INFORMATION
  Report Type: 
  Country: None (occurrence: None)
  Receive Date: 20120229
  Receipt Date: 20120229
  Transmission Date: 20120608
  Serious: Yes (Hospitalization)
  Sender: FDA-Public Use
  Company Number: None

PATIENT
  Sex: Female

DRUGS (4)
  1. MEANINGFUL BEAUTY DAY CREAM SPF 20, GUTHY/RENKER [Suspect]
     Indication: PROPHYLAXIS
     Dosage: DAILY, SKIN CARE
     Route: 061
  2. MEANINGFUL BEAUTY DAY CREAM SPF 20, GUTHY/RENKER [Suspect]
     Indication: PHOTOSENSITIVITY REACTION
     Dosage: DAILY, SKIN CARE
     Route: 061
  3. MEANINGFUL BEAUTY ANTI-AGING CREAM, GUTHY/RENKER [Suspect]
     Indication: SKIN WRINKLING
     Dosage: DAILY, SKIN CARE
     Route: 061
  4. MEANINGFUL BEAUTY ANTI-AGING CREAM, GUTHY/RENKER [Suspect]
     Indication: PROPHYLAXIS
     Dosage: DAILY, SKIN CARE
     Route: 061

REACTIONS (2)
  - PRODUCT CONTAMINATION MICROBIAL [None]
  - PNEUMONIA ESCHERICHIA [None]
